FAERS Safety Report 6944672-6 (Version None)
Quarter: 2010Q3

REPORT INFORMATION
  Report Type: 
  Country: None (occurrence: None)
  Receive Date: 20100827
  Receipt Date: 20100820
  Transmission Date: 20110219
  Serious: Yes (Death, Hospitalization)
  Sender: FDA-Public Use
  Company Number: IN-ELI_LILLY_AND_COMPANY-IN201008000032

PATIENT
  Sex: Male
  Weight: 71 kg

DRUGS (10)
  1. PEMETREXED [Suspect]
     Indication: NON-SMALL CELL LUNG CANCER
     Dosage: 500 MG/M2 (ACTUAL DOSE 920MG), DAY 1 OF EACH CYCLE
     Route: 042
     Dates: start: 20100727
  2. FOLIC ACID [Concomitant]
     Indication: PROPHYLAXIS
     Dosage: 400 UG, UNKNOWN
     Route: 048
     Dates: start: 20100721, end: 20100731
  3. VITAMIN B-12 [Concomitant]
     Indication: PROPHYLAXIS
     Dosage: 1000 UG, UNKNOWN
     Route: 030
     Dates: start: 20100726, end: 20100726
  4. DEXAMETHASONE [Concomitant]
     Indication: PROPHYLAXIS
     Dosage: 4 MG, 2/D
     Route: 048
     Dates: start: 20100726, end: 20100728
  5. RANITIDINE [Concomitant]
     Indication: SUPPORTIVE CARE
     Dosage: UNK, UNKNOWN
     Route: 065
     Dates: start: 20100727, end: 20100730
  6. METOCLOPRAMIDE [Concomitant]
     Indication: SUPPORTIVE CARE
     Dosage: UNK, UNKNOWN
     Route: 065
     Dates: start: 20100727
  7. CODEINE SULFATE [Concomitant]
     Indication: ANTITUSSIVE THERAPY
     Dosage: UNK, UNKNOWN
     Route: 065
     Dates: start: 20100726
  8. ASPIRIN [Concomitant]
     Indication: ANTIPLATELET THERAPY
     Dosage: UNK, UNKNOWN
     Route: 065
     Dates: start: 20100101
  9. CLOPIDOGREL [Concomitant]
     Indication: ANTIPLATELET THERAPY
     Dosage: UNK, UNKNOWN
     Route: 065
     Dates: start: 20100101
  10. ATORVASTATIN [Concomitant]
     Indication: BLOOD CHOLESTEROL
     Dosage: UNK, UNKNOWN
     Route: 065
     Dates: start: 20100101, end: 20100730

REACTIONS (1)
  - HEPATITIS ACUTE [None]
